FAERS Safety Report 8232618-2 (Version None)
Quarter: 2012Q1

REPORT INFORMATION
  Report Type: 
  Country: None (occurrence: None)
  Receive Date: 20120323
  Receipt Date: 20120308
  Transmission Date: 20120608
  Serious: Yes (Other)
  Sender: FDA-Public Use
  Company Number: CHPA2012US004406

PATIENT
  Sex: Female

DRUGS (1)
  1. EXCEDRIN (MIGRAINE) [Suspect]
     Indication: MIGRAINE
     Dosage: 2 DF, Q12H
     Route: 048
     Dates: end: 20120101

REACTIONS (6)
  - BACK PAIN [None]
  - GAIT DISTURBANCE [None]
  - ABDOMINAL DISCOMFORT [None]
  - OVERDOSE [None]
  - ARTHRITIS [None]
  - DRUG DEPENDENCE [None]
